FAERS Safety Report 14720039 (Version 5)
Quarter: 2018Q3

REPORT INFORMATION
  Report Type: Report from Study
  Country: ID (occurrence: ID)
  Receive Date: 20180405
  Receipt Date: 20180912
  Transmission Date: 20181010
  Serious: Yes (Death, Hospitalization)
  Sender: FDA-Public Use
  Company Number: ID-BAYER-2018-059631

PATIENT
  Age: 85 Year
  Sex: Male

DRUGS (3)
  1. NEXAVAR [Suspect]
     Active Substance: SORAFENIB
     Indication: HEPATOCELLULAR CARCINOMA
     Dosage: 200 MG, BID
     Route: 048
     Dates: start: 2018, end: 20180814
  2. NEXAVAR [Suspect]
     Active Substance: SORAFENIB
     Indication: HEPATOCELLULAR CARCINOMA
     Dosage: 400 MG, BID
     Route: 048
     Dates: start: 20180112, end: 2018
  3. NEXAVAR [Suspect]
     Active Substance: SORAFENIB
     Indication: HEPATOCELLULAR CARCINOMA
     Dosage: UNK
     Route: 048
     Dates: start: 20171011

REACTIONS (19)
  - Pruritus [Not Recovered/Not Resolved]
  - Coma [None]
  - Drug ineffective [None]
  - Intentional product use issue [None]
  - Abdominal distension [Not Recovered/Not Resolved]
  - Skin wound [Not Recovered/Not Resolved]
  - General physical health deterioration [Recovering/Resolving]
  - Dyspnoea [Not Recovered/Not Resolved]
  - Dry skin [Not Recovered/Not Resolved]
  - Fluid intake reduced [Recovering/Resolving]
  - Peripheral swelling [None]
  - Death [Fatal]
  - Fluid intake reduced [Not Recovered/Not Resolved]
  - Oropharyngeal pain [Not Recovered/Not Resolved]
  - Swelling [None]
  - Generalised erythema [Recovering/Resolving]
  - Feeding disorder [Not Recovered/Not Resolved]
  - Blood pressure decreased [None]
  - Food refusal [Recovering/Resolving]

NARRATIVE: CASE EVENT DATE: 201803
